FAERS Safety Report 4493864-7 (Version None)
Quarter: 2004Q4

REPORT INFORMATION
  Report Type: 
  Country: None (occurrence: None)
  Receive Date: 20041105
  Receipt Date: 20040921
  Transmission Date: 20050328
  Serious: Yes (Disabling)
  Sender: FDA-Public Use
  Company Number: FR-BRISTOL-MYERS SQUIBB COMPANY-12721668

PATIENT
  Age: 51 Year
  Sex: Male
  Weight: 79 kg

DRUGS (7)
  1. SUSTIVA [Suspect]
     Indication: HIV INFECTION
     Route: 048
     Dates: start: 20040919, end: 20040922
  2. NORVIR [Concomitant]
     Indication: HIV INFECTION
     Route: 048
     Dates: start: 20031201
  3. TELZIR [Concomitant]
     Route: 048
     Dates: start: 20040919
  4. ZIAGEN [Concomitant]
     Route: 048
     Dates: start: 20020701
  5. KALETRA [Concomitant]
     Route: 048
     Dates: start: 20010701
  6. EPIVIR [Concomitant]
     Route: 048
     Dates: start: 20020701
  7. BACTRIM [Concomitant]
     Indication: PROPHYLAXIS

REACTIONS (8)
  - ABDOMINAL PAIN [None]
  - DIARRHOEA [None]
  - FORMICATION [None]
  - HEADACHE [None]
  - HYPERHIDROSIS [None]
  - MALAISE [None]
  - NAUSEA [None]
  - VERTIGO [None]
